FAERS Safety Report 5685484-3 (Version None)
Quarter: 2008Q1

REPORT INFORMATION
  Report Type: 
  Country: None (occurrence: None)
  Receive Date: 20080328
  Receipt Date: 20080318
  Transmission Date: 20080703
  Serious: Yes (Other)
  Sender: FDA-Public Use
  Company Number: US-BAYER-200817325NA

PATIENT
  Sex: Male

DRUGS (3)
  1. AVELOX [Suspect]
     Indication: NASOPHARYNGITIS
     Route: 048
     Dates: start: 20080201, end: 20080201
  2. AVELOX [Suspect]
     Dosage: TOTAL DAILY DOSE: 400 MG  UNIT DOSE: 400 MG
     Route: 048
     Dates: start: 20080315
  3. EXTENDRYL-G [Concomitant]

REACTIONS (4)
  - ANAPHYLACTOID REACTION [None]
  - HYPERHIDROSIS [None]
  - MOBILITY DECREASED [None]
  - SKIN DISCOLOURATION [None]
